FAERS Safety Report 15879881 (Version 1)
Quarter: 2019Q1

REPORT INFORMATION
  Report Type: Spontaneous
  Country: US (occurrence: US)
  Receive Date: 20190104
  Receipt Date: 20190104
  Transmission Date: 20190417
  Serious: Yes (Hospitalization)
  Sender: FDA-Public Use
  Company Number: None

PATIENT
  Age: 2 Year
  Sex: Female
  Weight: 11.43 kg

DRUGS (3)
  1. PROBIOTICS [Concomitant]
     Active Substance: PROBIOTICS NOS
  2. ALBUTEROL. [Concomitant]
     Active Substance: ALBUTEROL
  3. MONTELUKAST SODIUM ORAL GRANULES 4MG [Suspect]
     Active Substance: MONTELUKAST SODIUM
     Indication: BRONCHIAL HYPERREACTIVITY
     Dosage: ?          QUANTITY:1 PACKET;?
     Route: 048
     Dates: start: 20181216, end: 20190103

REACTIONS (6)
  - Pneumonia [None]
  - Crying [None]
  - Croup infectious [None]
  - Insomnia [None]
  - Aggression [None]
  - Stridor [None]

NARRATIVE: CASE EVENT DATE: 20181217
